FAERS Safety Report 5268960-7 (Version None)
Quarter: 2007Q1

REPORT INFORMATION
  Report Type: 
  Country: None (occurrence: None)
  Receive Date: 20061214
  Receipt Date: 20060810
  Transmission Date: 20070707
  Serious: Yes (Hospitalization, Other)
  Sender: FDA-Public Use
  Company Number: 2006097621

PATIENT
  Age: 55 Year
  Sex: Male
  Weight: 57.6068 kg

DRUGS (9)
  1. XANAX [Suspect]
     Indication: ANXIETY
     Dosage: 1.5 MG (0.5 MG, 3 IN 1 D), ORAL
     Route: 048
  2. PEG-INTRON [Suspect]
     Indication: HEPATITIS C
     Dosage: 80 MCG/KG (1 IN 1 WK), SUBCUTANEOUS
     Route: 058
     Dates: start: 20051010
  3. RIBAVIRIN [Suspect]
     Indication: HEPATITIS C
     Dosage: 1000 MG (1 IN 1 D), ORAL
     Route: 048
     Dates: start: 20051010
  4. FOSINOPRIL SODIUM [Concomitant]
  5. ALBUTEROL [Concomitant]
  6. BUPROPION HCL [Concomitant]
  7. CITALOPRAM HYDROBROMIDE [Concomitant]
  8. ENSURE (AMINO ACIDS NOS, MINERALS NOS, VITAMINS NOS) [Concomitant]
  9. SILDENAFIL CITRATE [Concomitant]

REACTIONS (3)
  - DRUG WITHDRAWAL CONVULSIONS [None]
  - HEADACHE [None]
  - UPPER RESPIRATORY TRACT INFECTION [None]
